FAERS Safety Report 5975689-6 (Version None)
Quarter: 2008Q4

REPORT INFORMATION
  Report Type: 
  Country: None (occurrence: None)
  Receive Date: 20081202
  Receipt Date: 20081126
  Transmission Date: 20090506
  Serious: Yes (Life-Threatening, Hospitalization, Other)
  Sender: FDA-Public Use
  Company Number: PHHY2008TR29499

PATIENT

DRUGS (1)
  1. TRILEPTAL [Suspect]
     Dosage: 2X 60 ML
     Route: 048

REACTIONS (3)
  - ACCIDENTAL OVERDOSE [None]
  - COMA [None]
  - DRUG ADMINISTRATION ERROR [None]
